FAERS Safety Report 7452206-5 (Version None)
Quarter: 2011Q2

REPORT INFORMATION
  Report Type: 
  Country: None (occurrence: None)
  Receive Date: 20110425
  Receipt Date: 20110411
  Transmission Date: 20111010
  Serious: Yes (Death, Hospitalization)
  Sender: FDA-Public Use
  Company Number: 2011AL000021

PATIENT
  Age: 96 Year
  Sex: Male

DRUGS (1)
  1. FOLOTYN [Suspect]
     Indication: T-CELL LYMPHOMA
     Dosage: 40 MG; QW; IV
     Route: 042
     Dates: start: 20110310, end: 20110310

REACTIONS (5)
  - MUCOSAL INFLAMMATION [None]
  - DEHYDRATION [None]
  - T-CELL LYMPHOMA [None]
  - DISEASE PROGRESSION [None]
  - STOMATITIS [None]
